FAERS Safety Report 19461042 (Version 1)
Quarter: 2021Q2

REPORT INFORMATION
  Report Type: Other
  Country: IT (occurrence: IT)
  Receive Date: 20210625
  Receipt Date: 20210625
  Transmission Date: 20210717
  Serious: Yes (Other)
  Sender: FDA-Public Use
  Company Number: IT-ROCHE-2855976

PATIENT

DRUGS (3)
  1. MELATONIN [Suspect]
     Active Substance: MELATONIN
     Indication: RAPID EYE MOVEMENT SLEEP BEHAVIOUR DISORDER
     Dosage: 1?2 MG
     Route: 065
  2. CLONAZEPAM. [Suspect]
     Active Substance: CLONAZEPAM
     Indication: RAPID EYE MOVEMENT SLEEP BEHAVIOUR DISORDER
     Dosage: AT BEDTIME
     Route: 065
  3. SELEGILINE [Suspect]
     Active Substance: SELEGILINE
     Indication: RAPID EYE MOVEMENT SLEEP BEHAVIOUR DISORDER
     Dosage: WITH A TITRATION PERIOD OF 1 WEEK AT 5 MG/DAILY.
     Route: 065

REACTIONS (3)
  - Parkinson^s disease [Unknown]
  - Neurodegenerative disorder [Unknown]
  - Dementia with Lewy bodies [Unknown]
